FAERS Safety Report 13418618 (Version 2)
Quarter: 2017Q2

REPORT INFORMATION
  Report Type: Spontaneous
  Country: FR (occurrence: FR)
  Receive Date: 20170406
  Receipt Date: 20170523
  Transmission Date: 20170830
  Serious: Yes (Hospitalization)
  Sender: FDA-Public Use
  Company Number: PHHY2017FR049708

PATIENT
  Age: 60 Year
  Sex: Male

DRUGS (2)
  1. BI-PROFENID [Suspect]
     Active Substance: KETOPROFEN
     Indication: BACK PAIN
     Dosage: 100 MG, UNK
     Route: 030
     Dates: start: 20170203, end: 20170206
  2. VOLTAREN [Suspect]
     Active Substance: DICLOFENAC SODIUM
     Indication: BACK PAIN
     Dosage: 100 MG, UNK
     Route: 048
     Dates: start: 20170207, end: 20170211

REACTIONS (4)
  - Condition aggravated [Recovering/Resolving]
  - Melaena [Recovered/Resolved]
  - Anaemia [Recovering/Resolving]
  - Abscess [Recovering/Resolving]

NARRATIVE: CASE EVENT DATE: 201702
